FAERS Safety Report 14386704 (Version 1)
Quarter: 2018Q1

REPORT INFORMATION
  Report Type: Spontaneous
  Country: US (occurrence: US)
  Receive Date: 20180115
  Receipt Date: 20180115
  Transmission Date: 20180509
  Serious: Yes (Other)
  Sender: FDA-Public Use
  Company Number: US-SA-2017SA107859

PATIENT
  Age: 43 Year
  Sex: Female
  Weight: 74.84 kg

DRUGS (8)
  1. 5-FU [Concomitant]
     Active Substance: FLUOROURACIL
  2. TAXOTERE [Suspect]
     Active Substance: DOCETAXEL
     Indication: BREAST CANCER
     Route: 051
     Dates: start: 20070130, end: 20070130
  3. CARVEDILOL. [Concomitant]
     Active Substance: CARVEDILOL
  4. COUMADIN [Concomitant]
     Active Substance: WARFARIN SODIUM
     Route: 065
     Dates: start: 2003
  5. NEOSAR [Concomitant]
     Active Substance: CYCLOPHOSPHAMIDE
  6. WARFARIN [Concomitant]
     Active Substance: WARFARIN
  7. TAXOTERE [Suspect]
     Active Substance: DOCETAXEL
     Indication: BREAST CANCER
     Route: 051
     Dates: start: 20060918, end: 20060918
  8. ELLENCE [Concomitant]
     Active Substance: EPIRUBICIN HYDROCHLORIDE

REACTIONS (1)
  - Alopecia [Not Recovered/Not Resolved]

NARRATIVE: CASE EVENT DATE: 200606
